FAERS Safety Report 12578120 (Version 1)
Quarter: 2016Q3

REPORT INFORMATION
  Report Type: Spontaneous
  Country: US (occurrence: None)
  Receive Date: 20160720
  Receipt Date: 20160720
  Transmission Date: 20161109
  Serious: No
  Sender: FDA-Public Use
  Company Number: None

PATIENT
  Age: 28 Year
  Sex: Female
  Weight: 92.53 kg

DRUGS (3)
  1. ADDERALL XR [Suspect]
     Active Substance: AMPHETAMINE ASPARTATE\AMPHETAMINE SULFATE\DEXTROAMPHETAMINE SACCHARATE\DEXTROAMPHETAMINE SULFATE
     Indication: ATTENTION DEFICIT/HYPERACTIVITY DISORDER
     Dosage: 30 CAPSULE(S)  IN THE MORNING TAKEN BY MOUTH
     Route: 048
     Dates: start: 20160714
  2. CYMBALTA [Concomitant]
     Active Substance: DULOXETINE HYDROCHLORIDE
  3. ATIVAN [Concomitant]
     Active Substance: LORAZEPAM

REACTIONS (7)
  - Feeling abnormal [None]
  - Underdose [None]
  - Product packaging quantity issue [None]
  - Functional gastrointestinal disorder [None]
  - Activities of daily living impaired [None]
  - Sluggishness [None]
  - Nervousness [None]

NARRATIVE: CASE EVENT DATE: 20160718
